FAERS Safety Report 26107834 (Version 2)
Quarter: 2025Q4

REPORT INFORMATION
  Report Type: Spontaneous
  Country: EU (occurrence: EU)
  Receive Date: 20251201
  Receipt Date: 20251211
  Transmission Date: 20260119
  Serious: Yes (Life-Threatening, Other)
  Sender: JOHNSON AND JOHNSON
  Company Number: EU-JNJFOC-20251169074

PATIENT
  Age: 37 Year
  Sex: Female

DRUGS (4)
  1. SYMTUZA [Suspect]
     Active Substance: COBICISTAT\DARUNAVIR\EMTRICITABINE\TENOFOVIR ALAFENAMIDE
     Indication: HIV test positive
     Dosage: 13,000 NG/ML
     Route: 048
  2. BICTEGRAVIR [Suspect]
     Active Substance: BICTEGRAVIR
     Indication: HIV test positive
     Dosage: 6050 NG/ML
  3. RITONAVIR [Suspect]
     Active Substance: RITONAVIR
     Indication: HIV test positive
     Dosage: 509 NG/ML
  4. DOLUTEGRAVIR [Suspect]
     Active Substance: DOLUTEGRAVIR
     Indication: HIV test positive

REACTIONS (3)
  - B-cell small lymphocytic lymphoma [Unknown]
  - Virologic failure [Unknown]
  - Thrombocytopenia [Unknown]
